FAERS Safety Report 9461027 (Version 3)
Quarter: 2017Q3

REPORT INFORMATION
  Report Type: Report from Study
  Country: BR (occurrence: BR)
  Receive Date: 20130816
  Receipt Date: 20170725
  Transmission Date: 20171128
  Serious: Yes (Hospitalization, Other)
  Sender: FDA-Public Use
  Company Number: BR-ROCHE-1040262

PATIENT
  Age: 52 Year
  Sex: Female
  Weight: 66 kg

DRUGS (7)
  1. PRELONE [Concomitant]
     Active Substance: PREDNISOLONE
     Route: 065
  2. ACTEMRA [Suspect]
     Active Substance: TOCILIZUMAB
     Indication: RHEUMATOID ARTHRITIS
     Route: 042
     Dates: start: 20100701
  3. RIVOTRIL [Concomitant]
     Active Substance: CLONAZEPAM
     Route: 065
  4. AVAR [Concomitant]
     Active Substance: SULFACETAMIDE SODIUM\SULFUR
     Route: 065
  5. ARADOIS [Concomitant]
     Active Substance: LOSARTAN POTASSIUM
     Indication: HYPERTENSION
  6. ARAVA [Concomitant]
     Active Substance: LEFLUNOMIDE
     Indication: RHEUMATOID ARTHRITIS
     Route: 065
  7. NAPROSYN [Concomitant]
     Active Substance: NAPROXEN
     Indication: INFLAMMATION
     Route: 065

REACTIONS (12)
  - Pneumonia [Recovered/Resolved]
  - Bone erosion [Recovered/Resolved]
  - Hypersensitivity [Unknown]
  - Rib fracture [Recovered/Resolved]
  - Bone disorder [Unknown]
  - Osteoporosis [Recovered/Resolved]
  - Infection [Unknown]
  - Syncope [Recovered/Resolved]
  - Joint dislocation [Unknown]
  - Lung disorder [Unknown]
  - Pain [Unknown]
  - Foot deformity [Unknown]

NARRATIVE: CASE EVENT DATE: 201106
